FAERS Safety Report 14831102 (Version 2)
Quarter: 2019Q1

REPORT INFORMATION
  Report Type: Spontaneous
  Country: US (occurrence: US)
  Receive Date: 20180501
  Receipt Date: 20190306
  Transmission Date: 20190417
  Serious: Yes (Life-Threatening, Hospitalization, Other)
  Sender: FDA-Public Use
  Company Number: US-ACCORD-066348

PATIENT
  Age: 76 Year
  Sex: Female

DRUGS (8)
  1. PREDNISONE. [Concomitant]
     Active Substance: PREDNISONE
  2. GLIPIZIDE. [Concomitant]
     Active Substance: GLIPIZIDE
  3. TRIAMCINOLONE [Concomitant]
     Active Substance: TRIAMCINOLONE
     Dosage: 0.1% CREAM
  4. NIFEDIPINE. [Concomitant]
     Active Substance: NIFEDIPINE
  5. CLONIDINE/CLONIDINE HYDROCHLORIDE [Concomitant]
  6. GABAPENTIN. [Concomitant]
     Active Substance: GABAPENTIN
  7. METHOTREXATE. [Suspect]
     Active Substance: METHOTREXATE
     Indication: PEMPHIGOID
     Dosage: TAKING DAILY FOR 1 WEEK,APPROXIMATELY 4 MONTHS
  8. FUROSEMIDE. [Concomitant]
     Active Substance: FUROSEMIDE

REACTIONS (7)
  - Mucosal inflammation [Recovered/Resolved]
  - Accidental overdose [Unknown]
  - Respiratory failure [Unknown]
  - Off label use [Unknown]
  - Pancytopenia [Recovering/Resolving]
  - Liver function test increased [Recovering/Resolving]
  - Drug reaction with eosinophilia and systemic symptoms [Recovered/Resolved]
